FAERS Safety Report 9468392 (Version 1)
Quarter: 2013Q3

REPORT INFORMATION
  Report Type: Spontaneous
  Country: BR (occurrence: BR)
  Receive Date: 20130821
  Receipt Date: 20130821
  Transmission Date: 20140515
  Serious: Yes (Other)
  Sender: FDA-Public Use
  Company Number: PHHY2013BR088490

PATIENT
  Age: 59 Year
  Sex: Female

DRUGS (10)
  1. WARFARIN [Suspect]
     Indication: ATRIAL FIBRILLATION
     Dosage: 52.5 MG, PER WEEK
  2. WARFARIN [Interacting]
     Dosage: 80 MG, PER WEEK
  3. WARFARIN [Interacting]
     Dosage: 77.5 MG, PER WEEK
  4. WARFARIN [Interacting]
     Dosage: 52.5 MG, PER WEEK
  5. RIFAMPICIN [Interacting]
     Indication: TUBERCULOUS PLEURISY
     Dosage: 600 MG, PER DAY
     Dates: end: 20101015
  6. FERROUS SULFATE [Concomitant]
  7. HYDROCHLOROTHIAZIDE [Concomitant]
  8. ENALAPRIL [Concomitant]
  9. ISONIAZID [Concomitant]
     Indication: TUBERCULOUS PLEURISY
     Dosage: 400 MG, PER DAY
  10. PYRAZINAMIDE [Concomitant]
     Indication: TUBERCULOUS PLEURISY
     Dosage: 2 G, PER DAY

REACTIONS (5)
  - Haemorrhage [Unknown]
  - International normalised ratio increased [Unknown]
  - Drug resistance [Recovered/Resolved]
  - Haematuria [Unknown]
  - Drug interaction [Unknown]
